FAERS Safety Report 6376799-4 (Version None)
Quarter: 2009Q3

REPORT INFORMATION
  Report Type: 
  Country: None (occurrence: None)
  Receive Date: 20090924
  Receipt Date: 20090924
  Transmission Date: 20100115
  Serious: Yes (Life-Threatening)
  Sender: FDA-Public Use
  Company Number: None

PATIENT
  Age: 3 Month
  Sex: Male
  Weight: 3 kg

DRUGS (13)
  1. ERAXIS [Suspect]
     Indication: FUNGAL INFECTION
     Dosage: 3 MG/KG ONCE IV
     Route: 042
     Dates: start: 20080328
  2. CEFOTAXIME [Concomitant]
  3. EPINEPHRINE [Concomitant]
  4. VANCOMYCIN [Concomitant]
  5. FENTANYL [Concomitant]
  6. FLUCONAZOLE [Concomitant]
  7. FUROSEMIDE [Concomitant]
  8. CHLORAL HYDRATE [Concomitant]
  9. HYDROCORTISONE [Concomitant]
  10. DOPAMINE HCL [Concomitant]
  11. MIDAZOLAM HCL [Concomitant]
  12. VECURONIUM BROMIDE [Concomitant]
  13. PENTOBARBITAL CAP [Concomitant]

REACTIONS (3)
  - CARDIAC FAILURE [None]
  - GENERAL PHYSICAL HEALTH DETERIORATION [None]
  - OXYGEN SATURATION DECREASED [None]
